FAERS Safety Report 21693023 (Version 1)
Quarter: 2022Q4

REPORT INFORMATION
  Report Type: Spontaneous
  Country: US (occurrence: None)
  Receive Date: 20221206
  Receipt Date: 20221206
  Transmission Date: 20230113
  Serious: No
  Sender: FDA-Public Use
  Company Number: None

PATIENT
  Age: 74 Year
  Sex: Female

DRUGS (1)
  1. IBRANCE [Suspect]
     Active Substance: PALBOCICLIB
     Indication: Breast cancer
     Dosage: 75MG ONCE DAILY ORAL?
     Route: 048

REACTIONS (4)
  - Arthralgia [None]
  - Peripheral swelling [None]
  - Skin discolouration [None]
  - Blister [None]

NARRATIVE: CASE EVENT DATE: 20221107
